FAERS Safety Report 12974605 (Version 1)
Quarter: 2016Q4

REPORT INFORMATION
  Report Type: Report from Study
  Country: None (occurrence: US)
  Receive Date: 20161125
  Receipt Date: 20161125
  Transmission Date: 20170207
  Serious: Yes (Hospitalization, Other)
  Sender: FDA-Public Use
  Company Number: US-ABBVIE-16K-163-1786379-00

PATIENT
  Age: 76 Year
  Sex: Male

DRUGS (3)
  1. MAGNESIUM [Concomitant]
     Active Substance: MAGNESIUM
     Indication: CARDIAC DISORDER
  2. HUMIRA [Suspect]
     Active Substance: ADALIMUMAB
     Indication: CROHN^S DISEASE
     Route: 058
     Dates: start: 20160423
  3. PLASMA [Concomitant]
     Active Substance: HUMAN PLASMA
     Indication: CARDIAC DISORDER

REACTIONS (7)
  - Decreased appetite [Unknown]
  - Headache [Unknown]
  - Haematochezia [Unknown]
  - Gastrointestinal haemorrhage [Not Recovered/Not Resolved]
  - Abdominal pain upper [Unknown]
  - Psoriasis [Unknown]
  - Crohn^s disease [Unknown]

NARRATIVE: CASE EVENT DATE: 2016
